FAERS Safety Report 6976178-2 (Version None)
Quarter: 2010Q3

REPORT INFORMATION
  Report Type: 
  Country: None (occurrence: None)
  Receive Date: 20100910
  Receipt Date: 20100827
  Transmission Date: 20110219
  Serious: Yes (Hospitalization)
  Sender: FDA-Public Use
  Company Number: FR-ELI_LILLY_AND_COMPANY-FR201007003142

PATIENT
  Age: 80 Year
  Sex: Male

DRUGS (8)
  1. FORTEO [Suspect]
     Indication: OSTEOPOROSIS
     Dosage: 20 UG, DAILY (1/D)
     Route: 058
     Dates: start: 20090208, end: 20100501
  2. CORDARONE [Concomitant]
  3. LEVOTHYROXINE SODIUM [Concomitant]
  4. ZYLORIC [Concomitant]
  5. VASTEN [Concomitant]
  6. PREVISCAN [Concomitant]
  7. PERINDOPRIL ERBUMINE [Concomitant]
  8. CARVEDILOL [Concomitant]

REACTIONS (2)
  - CARDIAC FAILURE [None]
  - RENAL FAILURE [None]
